FAERS Safety Report 25795489 (Version 1)
Quarter: 2025Q3

REPORT INFORMATION
  Report Type: Spontaneous
  Country: US (occurrence: None)
  Receive Date: 20250911
  Receipt Date: 20250911
  Transmission Date: 20251021
  Serious: No
  Sender: FDA-CTU
  Company Number: None

PATIENT
  Sex: Male

DRUGS (11)
  1. XOLAIR PFS [Suspect]
     Active Substance: OMALIZUMAB
     Indication: Asthma
     Route: 058
     Dates: start: 20231129
  2. IALBUTEROL AER HFA [Concomitant]
  3. AMLODIPINE TAB5MG [Concomitant]
  4. BISOPROL FUM TAB 5MG [Concomitant]
  5. COLGHICINE TAB 0.6MG [Concomitant]
  6. DULERA AER 50-5MGG [Concomitant]
  7. EPIPEN 2-PAK INJ 0.3MG [Concomitant]
  8. IBUPROFEN [Concomitant]
     Active Substance: IBUPROFEN
  9. LASIX TAB 20MG [Concomitant]
  10. NORVASG TAB5MG [Concomitant]
  11. PREDNISONE [Concomitant]
     Active Substance: PREDNISONE

REACTIONS (2)
  - Drug ineffective [None]
  - Epistaxis [None]
